FAERS Safety Report 25236422 (Version 2)
Quarter: 2025Q3

REPORT INFORMATION
  Report Type: Spontaneous
  Country: US (occurrence: US)
  Receive Date: 20250424
  Receipt Date: 20250816
  Transmission Date: 20251021
  Serious: No
  Sender: ALEXION PHARMACEUTICALS
  Company Number: US-AstraZeneca-CH-00733307AP

PATIENT
  Age: 68 Year
  Sex: Female

DRUGS (2)
  1. BREZTRI [Suspect]
     Active Substance: BUDESONIDE\FORMOTEROL\GLYCOPYRROLATE
     Indication: Chronic obstructive pulmonary disease
     Route: 065
  2. SYMBICORT [Suspect]
     Active Substance: BUDESONIDE\FORMOTEROL FUMARATE DIHYDRATE
     Indication: Chronic obstructive pulmonary disease

REACTIONS (8)
  - Drug ineffective [Unknown]
  - Product dose omission issue [Unknown]
  - Inappropriate release of product for distribution [Unknown]
  - Device issue [Unknown]
  - Device delivery system issue [Unknown]
  - Product use issue [Unknown]
  - Dyspnoea [Unknown]
  - Device use issue [Unknown]
